FAERS Safety Report 26181901 (Version 1)
Quarter: 2025Q4

REPORT INFORMATION
  Report Type: Spontaneous
  Country: EU (occurrence: EU)
  Receive Date: 20251221
  Receipt Date: 20251221
  Transmission Date: 20260117
  Serious: Yes (Hospitalization, Disabling, Other)
  Sender: ACCORD
  Company Number: None

PATIENT
  Age: 69 Year
  Sex: Male
  Weight: 98 kg

DRUGS (8)
  1. DOCETAXEL [Suspect]
     Active Substance: DOCETAXEL
     Indication: Prostate cancer
     Dosage: STRENGTH: 80 MG/ML, 1ST LINE PALLIATIVE CHEMOTHERAPY, DOCETAXEL
     Dates: start: 20230425, end: 202307
  2. CABAZITAXEL [Suspect]
     Active Substance: CABAZITAXEL
     Indication: Prostate cancer
     Dosage: ADMINISTERED A TOTAL OF 7 CYCLES OF 3 WEEKS EACH, STRENGTH: 10 MG/ML?THEN DISCONTINUED
     Dates: start: 20240930, end: 20250703
  3. DEGARELIX [Concomitant]
     Active Substance: DEGARELIX
     Indication: Antiandrogen therapy
     Dosage: ONCE A MONTH
     Dates: start: 201910
  4. PURINOL [Concomitant]
     Dosage: 0-1-0, STRENGTH: 100 MG
  5. XGEVA [Concomitant]
     Active Substance: DENOSUMAB
     Indication: Prophylaxis
     Dosage: ONCE A MONTH
     Dates: start: 20220215
  6. CALCIUM CARBONATE [Concomitant]
     Active Substance: CALCIUM CARBONATE
  7. BICALUTAMIDE [Concomitant]
     Active Substance: BICALUTAMIDE
     Indication: Antiandrogen therapy
  8. DOCETAXEL [Suspect]
     Active Substance: DOCETAXEL
     Indication: Prostate cancer
     Dosage: STRENGTH: 80 MG/4ML, 2ND CHEMOTHERAPY WITH DOCETAXEL (TAXOTERE) RESUMED, A TOTAL OF 10 CYCLES
     Dates: start: 20240227, end: 202405

REACTIONS (4)
  - Hepatic cirrhosis [Unknown]
  - Haematotoxicity [Unknown]
  - Ascites [Unknown]
  - Fatigue [Unknown]

NARRATIVE: CASE EVENT DATE: 20250701
